FAERS Safety Report 15311983 (Version 1)
Quarter: 2018Q3

REPORT INFORMATION
  Report Type: Spontaneous
  Country: DE (occurrence: DE)
  Receive Date: 20180823
  Receipt Date: 20180823
  Transmission Date: 20181010
  Serious: Yes (Congenital Anomaly)
  Sender: FDA-Public Use
  Company Number: PHHY2018DE077592

PATIENT

DRUGS (1)
  1. METFORMIN [Suspect]
     Active Substance: METFORMIN HYDROCHLORIDE
     Indication: FOETAL EXPOSURE DURING PREGNANCY
     Dosage: (MOTHER DOSE:1500MG/DAY)
     Route: 064

REACTIONS (7)
  - Hypospadias [Unknown]
  - Urethral valves [Unknown]
  - Dysmorphism [Unknown]
  - Atrial septal defect [Unknown]
  - Scrotal disorder [Unknown]
  - Foetal exposure during pregnancy [Unknown]
  - Adactyly [Unknown]
